FAERS Safety Report 4831346-0 (Version None)
Quarter: 2005Q4

REPORT INFORMATION
  Report Type: 
  Country: None (occurrence: None)
  Receive Date: 20051118
  Receipt Date: 19900130
  Transmission Date: 20060501
  Serious: Yes (Hospitalization)
  Sender: FDA-Public Use
  Company Number: 1990AS00003

PATIENT
  Age: 54 Year
  Sex: Female
  Weight: 46 kg

DRUGS (6)
  1. XYLOCAINE VISCOUS [Suspect]
     Indication: OESOPHAGEAL DISCOMFORT
     Route: 048
     Dates: start: 19900118, end: 19900118
  2. DIGOXIN [Concomitant]
     Route: 048
  3. POTASSIUM CHLORIDE [Concomitant]
     Route: 048
  4. MEXILETINE [Concomitant]
     Route: 048
  5. CAPTOPRIL [Concomitant]
     Route: 048
  6. RANITIDINE [Concomitant]
     Dosage: 300 MG
     Route: 048

REACTIONS (10)
  - ACCIDENTAL OVERDOSE [None]
  - ANXIETY [None]
  - DIPLOPIA [None]
  - DIZZINESS [None]
  - DYSARTHRIA [None]
  - MEDICATION ERROR [None]
  - MUSCLE TWITCHING [None]
  - NYSTAGMUS [None]
  - TACHYCARDIA [None]
  - TONGUE OEDEMA [None]
